FAERS Safety Report 10071920 (Version 1)
Quarter: 2014Q2

REPORT INFORMATION
  Report Type: Spontaneous
  Country: US (occurrence: US)
  Receive Date: 20140411
  Receipt Date: 20140411
  Transmission Date: 20141212
  Serious: No
  Sender: FDA-Public Use
  Company Number: US-SHIRE-US201401249

PATIENT
  Sex: 0

DRUGS (2)
  1. VYVANSE [Suspect]
     Indication: ATTENTION DEFICIT/HYPERACTIVITY DISORDER
     Dosage: UNK, UNKNOWN
     Route: 048
  2. SUBOXONE [Suspect]
     Indication: DRUG DEPENDENCE
     Dosage: UNK, UNKNOWN
     Route: 060
     Dates: start: 2013

REACTIONS (2)
  - Incorrect dose administered [Not Recovered/Not Resolved]
  - No adverse event [Not Recovered/Not Resolved]
